FAERS Safety Report 7138638-3 (Version None)
Quarter: 2010Q4

REPORT INFORMATION
  Report Type: 
  Country: None (occurrence: None)
  Receive Date: 20101201
  Receipt Date: 20101201
  Transmission Date: 20110411
  Serious: Yes (Hospitalization)
  Sender: FDA-Public Use
  Company Number: None

PATIENT
  Age: 50 Year
  Sex: Male
  Weight: 93.441 kg

DRUGS (1)
  1. ACETAMINOPHEN W/ PROPOXYPHENE HCL [Suspect]
     Indication: ARTHRALGIA
     Dosage: 1 TABLET 4HRS PRN PO
     Route: 048
     Dates: start: 20101005, end: 20101129

REACTIONS (4)
  - DYSPEPSIA [None]
  - HEART RATE INCREASED [None]
  - PAIN IN JAW [None]
  - PALPITATIONS [None]
